FAERS Safety Report 13164250 (Version 1)
Quarter: 2017Q1

REPORT INFORMATION
  Report Type: Spontaneous
  Country: US (occurrence: US)
  Receive Date: 20170130
  Receipt Date: 20170130
  Transmission Date: 20170428
  Serious: Yes (Other)
  Sender: FDA-Public Use
  Company Number: US-TEVA-734007USA

PATIENT
  Age: 49 Year
  Sex: Female

DRUGS (13)
  1. MULTI VITAMIN [Concomitant]
     Active Substance: VITAMINS
  2. COPAXONE [Suspect]
     Active Substance: GLATIRAMER ACETATE
     Indication: MULTIPLE SCLEROSIS
     Route: 058
  3. NAPROSYN [Concomitant]
     Active Substance: NAPROXEN
  4. SPIRIVA [Concomitant]
     Active Substance: TIOTROPIUM BROMIDE MONOHYDRATE
  5. HYOSCYAMINE. [Concomitant]
     Active Substance: HYOSCYAMINE
  6. GABAPENTIN. [Concomitant]
     Active Substance: GABAPENTIN
  7. ZOMIG [Concomitant]
     Active Substance: ZOLMITRIPTAN
  8. PULMICORT TURBUHALER [Concomitant]
     Active Substance: BUDESONIDE
  9. WELLBUTRIN [Concomitant]
     Active Substance: BUPROPION HYDROCHLORIDE
  10. DIPHENHYDRAMINE. [Concomitant]
     Active Substance: DIPHENHYDRAMINE
  11. FISH OIL [Concomitant]
     Active Substance: FISH OIL
  12. ACYCLOVIR. [Concomitant]
     Active Substance: ACYCLOVIR
  13. BENADRYL [Concomitant]
     Active Substance: DIPHENHYDRAMINE HYDROCHLORIDE

REACTIONS (2)
  - Injection site reaction [Not Recovered/Not Resolved]
  - Multiple sclerosis relapse [Recovering/Resolving]

NARRATIVE: CASE EVENT DATE: 201204
